FAERS Safety Report 16052934 (Version 1)
Quarter: 2019Q1

REPORT INFORMATION
  Report Type: Spontaneous
  Country: HR (occurrence: HR)
  Receive Date: 20190308
  Receipt Date: 20190308
  Transmission Date: 20190418
  Serious: Yes (Hospitalization, Other)
  Sender: FDA-Public Use
  Company Number: HR-ASTRAZENECA-2019SE36473

PATIENT
  Age: 67 Year
  Sex: Female
  Weight: 66 kg

DRUGS (7)
  1. ESCITALOPRAM [Concomitant]
     Active Substance: ESCITALOPRAM OXALATE
  2. AMLODIPINE [Concomitant]
     Active Substance: AMLODIPINE BESYLATE
  3. INDOMETACIN [Concomitant]
     Active Substance: INDOMETHACIN
  4. XIGDUO XR [Suspect]
     Active Substance: DAPAGLIFLOZIN PROPANEDIOL\METFORMIN HYDROCHLORIDE
     Indication: DIABETES MELLITUS
     Dosage: 1 DF = 5 MG DAPAGLIFLOZINE + 1000 MG METFORMINE, 1DF TWO TIMES A DAY
     Route: 048
     Dates: start: 201607
  5. MELOXICAM. [Concomitant]
     Active Substance: MELOXICAM
  6. SITAGLIPTIN/METFORMIN [Concomitant]
     Active Substance: METFORMIN\SITAGLIPTIN
  7. GLICLAZIDE [Concomitant]
     Active Substance: GLICLAZIDE

REACTIONS (13)
  - Altered state of consciousness [Unknown]
  - Respiratory tract infection [Unknown]
  - Pyrexia [Unknown]
  - Oedema peripheral [Unknown]
  - Dehydration [Unknown]
  - Cardiac murmur [Unknown]
  - Tachycardia [Unknown]
  - Myocarditis [Unknown]
  - Pericardial effusion [Unknown]
  - Decreased appetite [Unknown]
  - Oropharyngeal pain [Unknown]
  - Tongue discomfort [Unknown]
  - Diabetic ketoacidosis [Unknown]
